FAERS Safety Report 7769084-7 (Version None)
Quarter: 2011Q3

REPORT INFORMATION
  Report Type: 
  Country: None (occurrence: None)
  Receive Date: 20110922
  Receipt Date: 20110413
  Transmission Date: 20111222
  Serious: No
  Sender: FDA-Public Use
  Company Number: US-ASTRAZENECA-2011SE21611

PATIENT
  Age: 13279 Day
  Sex: Male
  Weight: 111.1 kg

DRUGS (4)
  1. CELEBREX [Concomitant]
     Dates: start: 20070807
  2. SEROQUEL [Suspect]
     Route: 048
     Dates: start: 20070708
  3. CYMBALTA [Concomitant]
     Dosage: 30 MG QDXWK
     Dates: start: 20070807
  4. ABILIFY [Concomitant]
     Dosage: 10 MG QHS INCREASED UPTO 15 MG QHS-20MGQHSX DAILY
     Dates: start: 20070807

REACTIONS (5)
  - SPINAL OSTEOARTHRITIS [None]
  - WEIGHT INCREASED [None]
  - PAIN [None]
  - BACK PAIN [None]
  - OEDEMA PERIPHERAL [None]
